FAERS Safety Report 17233043 (Version 1)
Quarter: 2020Q1

REPORT INFORMATION
  Report Type: Spontaneous
  Country: FR (occurrence: FR)
  Receive Date: 20200104
  Receipt Date: 20200104
  Transmission Date: 20200409
  Serious: Yes (Death, Hospitalization)
  Sender: FDA-Public Use
  Company Number: FR-ACCORD-168112

PATIENT
  Age: 82 Year
  Sex: Female
  Weight: 68.5 kg

DRUGS (15)
  1. SOTALEX [Concomitant]
     Active Substance: SOTALOL
     Dosage: STRENGTH: 80 MG, BREAKABLE TABLET
     Route: 048
  2. LEVOTHYROX [Concomitant]
     Active Substance: LEVOTHYROXINE
     Dosage: STRENGTH: 75 MICROGRAMS, SCORED TABLET
     Route: 048
  3. DOLIPRANE [Concomitant]
     Active Substance: ACETAMINOPHEN
     Dosage: STRENGTH: 1000 MG,
     Route: 048
  4. DUROGESIC [Concomitant]
     Active Substance: FENTANYL
     Route: 062
  5. OGASTORO [Concomitant]
     Active Substance: LANSOPRAZOLE
     Dosage: STRENGTH: 15 MG
     Route: 048
  6. KETOPROFEN. [Suspect]
     Active Substance: KETOPROFEN
     Indication: PAIN
     Route: 048
     Dates: start: 20190704, end: 20190704
  7. OXYNORMORO [Concomitant]
     Active Substance: OXYCODONE HYDROCHLORIDE
     Dosage: STRENGTH: 5 MG, ON REQUEST 5 / D MAX
     Route: 048
  8. VERSATIS [Concomitant]
     Active Substance: LIDOCAINE
     Dosage: STRENGTH: 5 %, MEDICATED PLASTER
     Route: 062
  9. CARBOPLATIN. [Concomitant]
     Active Substance: CARBOPLATIN
     Route: 042
     Dates: start: 20190417
  10. NAVELBINE [Concomitant]
     Active Substance: VINORELBINE TARTRATE
     Dates: start: 20190417
  11. FORLAX [Concomitant]
     Active Substance: POLYETHYLENE GLYCOL 4000
     Dosage: STRENGTH: 10 G, POWDER FOR ORAL SOLUTION IN SACHET-DOSE
     Route: 048
  12. FUROSEMIDE. [Suspect]
     Active Substance: FUROSEMIDE
     Indication: HYPERTENSION
     Route: 048
  13. PERINDOPRIL [Suspect]
     Active Substance: PERINDOPRIL
     Indication: HYPERTENSION
     Route: 048
  14. KARDEGIC [Concomitant]
     Active Substance: ASPIRIN DL-LYSINE
     Dosage: STRENGTH: 75 MG, POWDER FOR ORAL SOLUTION IN SACHET-DOSE
     Route: 048
  15. LERCAN [Suspect]
     Active Substance: LERCANIDIPINE
     Indication: HYPERTENSION
     Dosage: STRENGTH: 10 MG,DIVISIBLE COATED TABLET
     Route: 048

REACTIONS (3)
  - Diarrhoea [Fatal]
  - Condition aggravated [Fatal]
  - Acute kidney injury [Fatal]

NARRATIVE: CASE EVENT DATE: 20190704
